FAERS Safety Report 9264861 (Version 2)
Quarter: 2013Q3

REPORT INFORMATION
  Report Type: Report from Study
  Country: BR (occurrence: BR)
  Receive Date: 20130501
  Receipt Date: 20130718
  Transmission Date: 20140515
  Serious: Yes (Disabling, Other)
  Sender: FDA-Public Use
  Company Number: PHHY2013BR041900

PATIENT
  Sex: Female

DRUGS (8)
  1. ACLASTA [Suspect]
     Indication: OSTEOPENIA
     Dosage: 5 MG
     Route: 042
     Dates: start: 20130314
  2. EFEXOR [Concomitant]
     Indication: DEPRESSION
     Dosage: 1 DF, A DAY
     Route: 048
     Dates: start: 2008
  3. ANGELIQ [Concomitant]
     Indication: MENOPAUSE
     Dosage: 1 DF, A DAY
     Route: 048
  4. EUTHYROX [Concomitant]
     Indication: HYPOTHYROIDISM
     Dosage: 1 DF, A DAY
     Route: 048
  5. DONAREN [Concomitant]
     Indication: RESTLESS LEGS SYNDROME
     Dosage: 1 DF, A DAY
     Route: 048
  6. AAS [Concomitant]
     Dosage: 81 MG, UNK
  7. SELOZOK [Concomitant]
     Indication: ARRHYTHMIA
     Dosage: UNK
  8. NEBILET [Concomitant]
     Indication: ARRHYTHMIA
     Dosage: 1 DF, A DAY
     Route: 048

REACTIONS (23)
  - Abasia [Unknown]
  - Movement disorder [Recovered/Resolved]
  - Musculoskeletal stiffness [Recovered/Resolved]
  - Joint stiffness [Recovered/Resolved]
  - Temporomandibular joint syndrome [Recovered/Resolved]
  - Photophobia [Recovered/Resolved]
  - Lacrimation increased [Recovered/Resolved]
  - Eye pruritus [Recovered/Resolved]
  - Eye irritation [Recovered/Resolved]
  - Ocular hyperaemia [Recovered/Resolved]
  - Eyelid oedema [Recovered/Resolved]
  - Vision blurred [Recovered/Resolved]
  - Chest pain [Recovered/Resolved]
  - Myalgia [Recovered/Resolved]
  - Pain in extremity [Recovered/Resolved]
  - Eye pain [Recovered/Resolved]
  - Musculoskeletal pain [Recovered/Resolved]
  - Urticaria [Recovered/Resolved]
  - Grip strength decreased [Recovered/Resolved]
  - Fear [Unknown]
  - Abdominal pain upper [Recovered/Resolved]
  - Pain [Recovered/Resolved]
  - Arthralgia [Unknown]
